FAERS Safety Report 7429517-2 (Version None)
Quarter: 2011Q2

REPORT INFORMATION
  Report Type: 
  Country: None (occurrence: None)
  Receive Date: 20110421
  Receipt Date: 20110414
  Transmission Date: 20111010
  Serious: Yes (Hospitalization)
  Sender: FDA-Public Use
  Company Number: A0742975A

PATIENT
  Age: 48 Year
  Sex: Male
  Weight: 108.2 kg

DRUGS (7)
  1. HYDROCHLOROTHIAZIDE [Concomitant]
     Dates: start: 20000907, end: 20060702
  2. ISOSORBIDE DINITRATE [Concomitant]
     Dates: start: 20060515, end: 20080229
  3. LASIX [Concomitant]
  4. COREG [Concomitant]
     Dates: start: 20060905, end: 20070516
  5. AVANDIA [Suspect]
     Route: 048
     Dates: start: 20001020, end: 20070129
  6. COUMADIN [Concomitant]
  7. PRAVACHOL [Concomitant]
     Dates: start: 20021219, end: 20040321

REACTIONS (4)
  - CARDIAC FAILURE CONGESTIVE [None]
  - MYOCARDIAL INFARCTION [None]
  - RENAL IMPAIRMENT [None]
  - CARDIAC DISORDER [None]
